FAERS Safety Report 19265875 (Version 2)
Quarter: 2021Q2

REPORT INFORMATION
  Report Type: Report from Study
  Country: US (occurrence: US)
  Receive Date: 20210517
  Receipt Date: 20210524
  Transmission Date: 20210717
  Serious: Yes (Hospitalization)
  Sender: FDA-Public Use
  Company Number: US-PFIZER INC-2021526447

PATIENT
  Age: 3 Year
  Sex: Male
  Weight: 19 kg

DRUGS (25)
  1. SIROLIMUS. [Suspect]
     Active Substance: SIROLIMUS
     Dosage: 0.15 MG, BID
     Route: 048
     Dates: start: 20201030, end: 20201117
  2. SIROLIMUS. [Suspect]
     Active Substance: SIROLIMUS
     Dosage: 0.15 MG, SINGLE
     Route: 048
     Dates: start: 20201118, end: 20201118
  3. SIROLIMUS. [Suspect]
     Active Substance: SIROLIMUS
     Dosage: 0.18 MG, BID
     Route: 048
     Dates: start: 20210413
  4. ACETAZOLAMIDE. [Concomitant]
     Active Substance: ACETAZOLAMIDE
     Dosage: UNK
     Dates: start: 20201121
  5. SIROLIMUS. [Suspect]
     Active Substance: SIROLIMUS
     Dosage: 0.17 MG, BID
     Route: 048
     Dates: start: 20201027, end: 20201028
  6. SIROLIMUS. [Suspect]
     Active Substance: SIROLIMUS
     Dosage: 0.18 MG, SINGLE
     Route: 048
     Dates: start: 20210412, end: 20210412
  7. SIROLIMUS. [Suspect]
     Active Substance: SIROLIMUS
     Dosage: 0.16 MG, SINGLE
     Route: 048
     Dates: start: 20210412, end: 20210412
  8. LIDOCAINE/PRILOCAINE [Concomitant]
     Active Substance: LIDOCAINE\PRILOCAINE
     Dosage: UNK
     Dates: start: 20200417
  9. TACROLIMUS. [Concomitant]
     Active Substance: TACROLIMUS
     Dosage: UNK
     Dates: start: 20201029
  10. SIROLIMUS. [Suspect]
     Active Substance: SIROLIMUS
     Indication: IMMUNOSUPPRESSION
     Dosage: 0.68 MG, EVERY 4 HOURS FOR 3 DOSES
     Route: 048
     Dates: start: 20201026, end: 20201027
  11. SIROLIMUS. [Suspect]
     Active Substance: SIROLIMUS
     Dosage: 0.16 MG, BID
     Route: 048
     Dates: start: 20210402, end: 20210411
  12. BACTRIM [Concomitant]
     Active Substance: SULFAMETHOXAZOLE\TRIMETHOPRIM
     Dosage: UNK
     Dates: start: 20201028
  13. SIROLIMUS. [Suspect]
     Active Substance: SIROLIMUS
     Dosage: 0.15 MG, SINGLE
     Route: 048
     Dates: start: 20201029, end: 20201029
  14. SIROLIMUS. [Suspect]
     Active Substance: SIROLIMUS
     Dosage: 0.14 MG, SINGLE
     Route: 048
     Dates: start: 20201223, end: 20201224
  15. SIROLIMUS. [Suspect]
     Active Substance: SIROLIMUS
     Dosage: 0.14 MG, BID
     Route: 048
     Dates: start: 20201225, end: 20210331
  16. SODIUM CHLORIDE. [Concomitant]
     Active Substance: SODIUM CHLORIDE
     Dosage: UNK
     Dates: start: 20200417
  17. MELATONIN [Concomitant]
     Active Substance: MELATONIN
     Dosage: UNK
     Dates: start: 20201113
  18. NYSTATIN. [Concomitant]
     Active Substance: NYSTATIN
     Dosage: UNK
     Dates: start: 20210401
  19. FIBRE, DIETARY [Concomitant]
     Active Substance: PSYLLIUM HUSK
     Dosage: UNK
     Dates: start: 20210418
  20. SIROLIMUS. [Suspect]
     Active Substance: SIROLIMUS
     Dosage: 0.17 MG, SINGLE
     Route: 048
     Dates: start: 20201029, end: 20201029
  21. SIROLIMUS. [Suspect]
     Active Substance: SIROLIMUS
     Dosage: 0.14 MG, SINGLE
     Route: 048
     Dates: start: 20210401, end: 20210401
  22. DIPHENHYDRAMINE. [Concomitant]
     Active Substance: DIPHENHYDRAMINE
     Dosage: UNK
     Dates: start: 20200417
  23. ACETAMINOPHEN. [Concomitant]
     Active Substance: ACETAMINOPHEN
     Dosage: UNK
     Dates: start: 201906
  24. SIROLIMUS. [Suspect]
     Active Substance: SIROLIMUS
     Dosage: 0.14 MG, SINGLE
     Route: 048
     Dates: start: 20201118, end: 20201118
  25. SIROLIMUS. [Suspect]
     Active Substance: SIROLIMUS
     Dosage: 0.14 MG, BID
     Route: 048
     Dates: start: 20201119, end: 20201222

REACTIONS (2)
  - Oral herpes [Not Recovered/Not Resolved]
  - Mouth ulceration [Not Recovered/Not Resolved]

NARRATIVE: CASE EVENT DATE: 20210429
